FAERS Safety Report 13124309 (Version 1)
Quarter: 2017Q1

REPORT INFORMATION
  Report Type: Spontaneous
  Country: JP (occurrence: JP)
  Receive Date: 20170118
  Receipt Date: 20170118
  Transmission Date: 20170428
  Serious: Yes (Life-Threatening)
  Sender: FDA-Public Use
  Company Number: JP-SUN PHARMACEUTICAL INDUSTRIES LTD-2017R1-131542

PATIENT
  Age: 75 Year
  Sex: Female

DRUGS (10)
  1. GANCICLOVIR. [Suspect]
     Active Substance: GANCICLOVIR
     Indication: VASCULITIS CEREBRAL
  2. METHOTREXATE. [Concomitant]
     Active Substance: METHOTREXATE
     Indication: RHEUMATOID ARTHRITIS
     Dosage: UNK
     Route: 065
  3. METHYLPREDNISOLONE. [Suspect]
     Active Substance: METHYLPREDNISOLONE
     Indication: VASCULITIS CEREBRAL
     Dosage: UNK
     Route: 065
  4. FOSCARNET [Suspect]
     Active Substance: FOSCARNET
     Indication: VIRAL VASCULITIS
     Dosage: UNK
     Route: 065
  5. FOSCARNET [Suspect]
     Active Substance: FOSCARNET
     Indication: VASCULITIS CEREBRAL
  6. ACYCLOVIR. [Suspect]
     Active Substance: ACYCLOVIR
     Indication: VASCULITIS CEREBRAL
  7. GANCICLOVIR. [Suspect]
     Active Substance: GANCICLOVIR
     Indication: VIRAL VASCULITIS
     Dosage: UNK
     Route: 065
  8. METHYLPREDNISOLONE. [Suspect]
     Active Substance: METHYLPREDNISOLONE
     Indication: VIRAL VASCULITIS
  9. PREDNISOLONE. [Concomitant]
     Active Substance: PREDNISOLONE
     Indication: RHEUMATOID ARTHRITIS
     Dosage: UNK
     Route: 065
  10. ACYCLOVIR. [Suspect]
     Active Substance: ACYCLOVIR
     Indication: VIRAL VASCULITIS
     Dosage: UNK
     Route: 065

REACTIONS (1)
  - Drug ineffective [Not Recovered/Not Resolved]
